FAERS Safety Report 11969521 (Version 1)
Quarter: 2016Q1

REPORT INFORMATION
  Report Type: Spontaneous
  Country: US (occurrence: None)
  Receive Date: 20160127
  Receipt Date: 20160127
  Transmission Date: 20160526
  Serious: Yes (Disabling)
  Sender: FDA-Public Use
  Company Number: None

PATIENT
  Age: 30 Year
  Sex: Male
  Weight: 80.29 kg

DRUGS (1)
  1. DEXTROAMPHETAMINE SULFATE. [Suspect]
     Active Substance: DEXTROAMPHETAMINE SULFATE
     Indication: NARCOLEPSY
     Dosage: 4 ONCE DAILY, TAKEN BY MOUTH
     Dates: start: 20070101, end: 20160126

REACTIONS (3)
  - Product contamination [None]
  - Product quality issue [None]
  - Product contamination chemical [None]

NARRATIVE: CASE EVENT DATE: 20160101
